FAERS Safety Report 7012616-7 (Version None)
Quarter: 2010Q3

REPORT INFORMATION
  Report Type: 
  Country: None (occurrence: None)
  Receive Date: 20100924
  Receipt Date: 20100920
  Transmission Date: 20110219
  Serious: Yes (Hospitalization)
  Sender: FDA-Public Use
  Company Number: AT-ROCHE-662882

PATIENT
  Sex: Female
  Weight: 52 kg

DRUGS (6)
  1. TRASTUZUMAB [Suspect]
     Indication: BREAST CANCER
     Dosage: LOADING DOSE.
     Route: 042
     Dates: start: 20090818
  2. TRASTUZUMAB [Suspect]
     Dosage: FORM: VIAL, LAST DOSE PRIOR TO SAE: 02 OCTOBER 2009, DOSE LEVEL: 6 MG/KG.
     Route: 042
     Dates: start: 20090908
  3. DOCETAXEL [Suspect]
     Indication: BREAST CANCER
     Dosage: FORM: VIAL, LAST DOSE PRIOR TO SAE: 02 OCTOBER 2009 (DOSE LEVEL : 60G/M2), PERMANENTLY DISCONTINUED.
     Route: 042
     Dates: start: 20090818, end: 20091118
  4. CARBOPLATIN [Suspect]
     Indication: BREAST CANCER
     Dosage: FORM: VIAL, LAST DOSE PRIOR TO SAE: 02 OCTOBER 2009, DOSE LEVEL: 5 AUC, PERMANENTLY DISCONTINUED.
     Route: 042
     Dates: start: 20090818, end: 20091118
  5. PANTOLOC [Concomitant]
     Dates: start: 20090818
  6. FEMARA [Concomitant]
     Dates: start: 20090801

REACTIONS (2)
  - PANCYTOPENIA [None]
  - THROMBOCYTOPENIA [None]
